FAERS Safety Report 11060560 (Version 2)
Quarter: 2015Q3

REPORT INFORMATION
  Report Type: Spontaneous
  Country: JP (occurrence: JP)
  Receive Date: 20150423
  Receipt Date: 20150921
  Transmission Date: 20151125
  Serious: Yes (Other)
  Sender: FDA-Public Use
  Company Number: JP-MYLANLABS-2015M1012296

PATIENT

DRUGS (3)
  1. IFOMIDE [Suspect]
     Active Substance: IFOSFAMIDE
     Indication: NEPHROBLASTOMA
     Dosage: 2CYCLES
     Route: 041
  2. LASTET [Suspect]
     Active Substance: ETOPOSIDE
     Indication: NEPHROBLASTOMA
     Dosage: 2CYCLES
     Route: 041
  3. CARBOPLATIN INJECTION 150 MG ^NK^ [Suspect]
     Active Substance: CARBOPLATIN
     Indication: NEPHROBLASTOMA
     Dosage: 2CYCLES
     Route: 041

REACTIONS (4)
  - Bone marrow failure [Unknown]
  - Renal impairment [Unknown]
  - Renal tubular disorder [Unknown]
  - Renal tubular acidosis [Recovered/Resolved]
